FAERS Safety Report 18148560 (Version 5)
Quarter: 2025Q3

REPORT INFORMATION
  Report Type: Report from Study
  Country: US (occurrence: US)
  Receive Date: 20200814
  Receipt Date: 20250916
  Transmission Date: 20251021
  Serious: Yes (Disabling, Other)
  Sender: AMGEN
  Company Number: US-HORIZON-TEP-1199-2020

PATIENT
  Age: 70 Year
  Sex: Female
  Weight: 61.8 kg

DRUGS (38)
  1. TEPEZZA [Suspect]
     Active Substance: TEPROTUMUMAB-TRBW
     Indication: Endocrine ophthalmopathy
     Dosage: 660 MILLIGRAM, Q3WK, (FIRST INFUSION)
     Route: 042
     Dates: start: 20200310
  2. TEPEZZA [Suspect]
     Active Substance: TEPROTUMUMAB-TRBW
     Dosage: 20 MILLIGRAM/KILOGRAM, Q3WK, (SECOND INFUSION, 1340 MILLIGRAM ADMINISTRED, 160 MILLIGRAM WASTE)
     Route: 042
     Dates: start: 20200331
  3. TEPEZZA [Suspect]
     Active Substance: TEPROTUMUMAB-TRBW
     Dosage: 20 MILLIGRAM/KILOGRAM, Q3WK, (THIRD INFUSION, 1320 MILLIGRAM ADMINISTRED, 180 MILLIGRAM WASTE)
     Route: 042
     Dates: start: 20200422
  4. TEPEZZA [Suspect]
     Active Substance: TEPROTUMUMAB-TRBW
     Dosage: 1320 MILLIGRAM, Q3WK, (FOURTH INFUSION)
     Route: 042
     Dates: start: 20200513
  5. TEPEZZA [Suspect]
     Active Substance: TEPROTUMUMAB-TRBW
     Dosage: 20 MILLIGRAM/KILOGRAM, Q3WK, (FIFTH INFUSION 1320 MILLIGRAM ADMINISTRED, 180 MILLIGRAM WASTE)
     Route: 042
     Dates: start: 20200611
  6. TEPEZZA [Suspect]
     Active Substance: TEPROTUMUMAB-TRBW
     Dosage: 20 MILLIGRAM/KILOGRAM, Q3WK, (SIXTH INFUSION 251 MILLIGRAM WASTE)
     Route: 042
     Dates: start: 20200708
  7. TEPEZZA [Suspect]
     Active Substance: TEPROTUMUMAB-TRBW
     Dosage: 20 MILLIGRAM/KILOGRAM, Q4WK, (SEVENTH INFUSION 1236 MILLIGRAM ADMINISTERD, 264 MILLIGRAM  WASTE)
     Route: 042
     Dates: start: 20200806
  8. TEPEZZA [Suspect]
     Active Substance: TEPROTUMUMAB-TRBW
     Dosage: 1236 MILLIGRAM, Q4WK, (EIGHT INFUSION)
     Route: 042
     Dates: start: 20200904
  9. XANAX [Concomitant]
     Active Substance: ALPRAZOLAM
     Route: 048
  10. LEVOTHYROXINE [Concomitant]
     Active Substance: LEVOTHYROXINE
     Route: 048
  11. LEVOTHYROXINE [Concomitant]
     Active Substance: LEVOTHYROXINE
     Dosage: 75 MICROGRAM, QD
     Route: 065
  12. ALEVE [Concomitant]
     Active Substance: NAPROXEN SODIUM
     Dosage: 20 MILLIGRAM, TID (ALEVE TABLET)
     Route: 048
  13. ALEVE [Concomitant]
     Active Substance: NAPROXEN SODIUM
  14. TRAZODONE [Concomitant]
     Active Substance: TRAZODONE HYDROCHLORIDE
     Route: 065
  15. DIETHYLPROPION [Concomitant]
     Active Substance: DIETHYLPROPION
     Dosage: 25 MILLIGRAM, BID
     Route: 065
  16. CALCIUM CARBONATE\VITAMIN D [Concomitant]
     Active Substance: CALCIUM CARBONATE\VITAMIN D
     Dosage: 600 MILLIGRAM, QD
     Route: 065
  17. CALCIUM CARBONATE\VITAMIN D [Concomitant]
     Active Substance: CALCIUM CARBONATE\VITAMIN D
     Dosage: 50 MILLIGRAM, QD
     Route: 065
  18. HERBALS\TURMERIC [Concomitant]
     Active Substance: HERBALS\TURMERIC
     Route: 065
  19. SELENIUM [Concomitant]
     Active Substance: SELENIUM
     Dosage: 200 MICROGRAM, QD
     Route: 065
  20. DIETARY SUPPLEMENT\RESVERATROL [Concomitant]
     Active Substance: DIETARY SUPPLEMENT\RESVERATROL
     Route: 065
  21. FIBER THERAPY (CALCIUM POLYCARBOPHIL) [Concomitant]
     Active Substance: CALCIUM POLYCARBOPHIL
     Route: 065
  22. GARLIQUE [Concomitant]
     Active Substance: GARLIC
     Route: 065
  23. SERTRALINE [Concomitant]
     Active Substance: SERTRALINE HYDROCHLORIDE
     Route: 048
  24. ELIQUIS [Concomitant]
     Active Substance: APIXABAN
     Route: 048
  25. ESCITALOPRAM OXALATE [Concomitant]
     Active Substance: ESCITALOPRAM OXALATE
     Route: 048
  26. HYDROXYCHLOROQUINE [Concomitant]
     Active Substance: HYDROXYCHLOROQUINE
     Route: 048
  27. PEPCID [Concomitant]
     Active Substance: FAMOTIDINE
     Route: 048
  28. PRILOSEC OTC [Concomitant]
     Active Substance: OMEPRAZOLE MAGNESIUM
     Route: 048
  29. ASPIRIN [Concomitant]
     Active Substance: ASPIRIN
     Route: 065
  30. BENADRYL [Concomitant]
     Active Substance: DIPHENHYDRAMINE HYDROCHLORIDE
     Route: 048
  31. BENADRYL [Concomitant]
     Active Substance: DIPHENHYDRAMINE HYDROCHLORIDE
     Route: 048
  32. FISH OIL [Concomitant]
     Active Substance: FISH OIL
     Dosage: 500 MILLIGRAM, QD
     Route: 048
  33. VITAMINS [Concomitant]
     Active Substance: VITAMINS
     Dosage: UNK UNK, QD (ONE DAILY)
     Route: 065
  34. LIDOCAINE [Concomitant]
     Active Substance: LIDOCAINE
     Route: 065
  35. CHONDROITIN SULFATE (BOVINE)\GLUCOSAMINE HYDROCHLORIDE [Concomitant]
     Active Substance: CHONDROITIN SULFATE (BOVINE)\GLUCOSAMINE HYDROCHLORIDE
     Route: 048
  36. NEXIUM [Concomitant]
     Active Substance: ESOMEPRAZOLE MAGNESIUM
     Route: 048
  37. SUDAFED [Concomitant]
     Active Substance: PSEUDOEPHEDRINE HYDROCHLORIDE
  38. ALPRAZOLAM [Concomitant]
     Active Substance: ALPRAZOLAM
     Route: 065

REACTIONS (35)
  - Deafness neurosensory [Not Recovered/Not Resolved]
  - Neuropathy peripheral [Recovered/Resolved]
  - Diverticulitis [Unknown]
  - Endocrine ophthalmopathy [Not Recovered/Not Resolved]
  - Food allergy [Recovered/Resolved]
  - Muscle spasms [Not Recovered/Not Resolved]
  - Myalgia [Not Recovered/Not Resolved]
  - Constipation [Unknown]
  - Cognitive disorder [Not Recovered/Not Resolved]
  - Oral mucosal blistering [Recovered/Resolved]
  - Tongue blistering [Recovered/Resolved]
  - Neck pain [Unknown]
  - Anxiety [Not Recovered/Not Resolved]
  - Emotional distress [Not Recovered/Not Resolved]
  - Orthostatic hypotension [Not Recovered/Not Resolved]
  - Inappropriate schedule of product administration [Unknown]
  - Thirst [Unknown]
  - Dysphagia [Unknown]
  - Peripheral arterial occlusive disease [Unknown]
  - Anosmia [Unknown]
  - Skin disorder [Unknown]
  - Gastritis [Unknown]
  - Memory impairment [Unknown]
  - Chills [Unknown]
  - Nervousness [Unknown]
  - Paraesthesia [Unknown]
  - Therapy non-responder [Unknown]
  - Altered visual depth perception [Unknown]
  - Irritability [Unknown]
  - Disturbance in attention [Unknown]
  - Dizziness [Unknown]
  - Insomnia [Recovered/Resolved]
  - Fatigue [Unknown]
  - Alopecia [Unknown]
  - Diarrhoea [Unknown]

NARRATIVE: CASE EVENT DATE: 20200101
